FAERS Safety Report 19259506 (Version 2)
Quarter: 2021Q4

REPORT INFORMATION
  Report Type: Spontaneous
  Country: US (occurrence: US)
  Receive Date: 20210514
  Receipt Date: 20211221
  Transmission Date: 20220303
  Serious: Yes (Other)
  Sender: FDA-Public Use
  Company Number: US-PFIZER INC-2021305866

PATIENT
  Age: 87 Year
  Sex: Male
  Weight: 104.33 kg

DRUGS (4)
  1. VYNDAMAX [Suspect]
     Active Substance: TAFAMIDIS
     Indication: Cardiac amyloidosis
     Dosage: 61 MG, 1X/DAY, (61MG. ONE CAPSULE DAILY BY MOUTH. )
     Route: 048
     Dates: start: 20210425
  2. TRAMADOL [Concomitant]
     Active Substance: TRAMADOL
     Indication: Pain
     Dosage: NOT PROVIDED. HE CAN TAKE 1 EVERY 8 HOURS, BUT ONLY TAKES 1 EVERY 2-3 DAYS AS NEEDED.
  3. ENTRESTO [Concomitant]
     Active Substance: SACUBITRIL\VALSARTAN
     Indication: Cardiac disorder
     Dosage: UNK
  4. XARELTO [Concomitant]
     Active Substance: RIVAROXABAN
     Indication: Cardiac disorder
     Dosage: UNK

REACTIONS (6)
  - Haemorrhage [Unknown]
  - Lumbar spinal stenosis [Unknown]
  - Condition aggravated [Unknown]
  - Pain in extremity [Unknown]
  - Rash [Unknown]
  - Pruritus [Recovered/Resolved]
